FAERS Safety Report 21634049 (Version 4)
Quarter: 2023Q1

REPORT INFORMATION
  Report Type: Report from Study
  Country: IT (occurrence: IT)
  Receive Date: 20221123
  Receipt Date: 20230131
  Transmission Date: 20230418
  Serious: Yes (Hospitalization)
  Sender: FDA-Public Use
  Company Number: IT-PFIZER INC-PV202200107953

PATIENT
  Age: 26 Year
  Sex: Female

DRUGS (2)
  1. CYTOTEC [Suspect]
     Active Substance: MISOPROSTOL
     Indication: Abortion induced
     Dosage: 200 UG, 2X/DAY
     Route: 048
     Dates: start: 20180420, end: 20180420
  2. MIFEPRISTONE [Suspect]
     Active Substance: MIFEPRISTONE
     Indication: Abortion induced
     Dosage: UNK
     Route: 048
     Dates: start: 20180418, end: 20180418

REACTIONS (2)
  - Pelvic pain [Recovered/Resolved]
  - Post abortion haemorrhage [Recovered/Resolved]

NARRATIVE: CASE EVENT DATE: 20180420
